FAERS Safety Report 6103176-3 (Version None)
Quarter: 2009Q1

REPORT INFORMATION
  Report Type: 
  Country: None (occurrence: None)
  Receive Date: 20090227
  Receipt Date: 20090220
  Transmission Date: 20090719
  Serious: Yes (Death, Hospitalization)
  Sender: FDA-Public Use
  Company Number: 2008-04635

PATIENT

DRUGS (1)
  1. VELCADE [Suspect]
     Indication: B-CELL LYMPHOMA

REACTIONS (1)
  - CHOLECYSTITIS [None]
